FAERS Safety Report 6221671-3 (Version None)
Quarter: 2009Q2

REPORT INFORMATION
  Report Type: 
  Country: None (occurrence: None)
  Receive Date: 20090605
  Receipt Date: 20090602
  Transmission Date: 20091009
  Serious: Yes (Hospitalization, Disabling)
  Sender: FDA-Public Use
  Company Number: FR-WYE-G03773909

PATIENT
  Age: 6 Year
  Sex: Male

DRUGS (2)
  1. ADVIL [Suspect]
     Indication: ARTHRALGIA
     Dosage: ONE SINGLE DOSE; ORAL
     Route: 048
     Dates: start: 20090214, end: 20090214
  2. ADVIL [Suspect]
     Indication: JOINT SWELLING
     Dosage: ONE SINGLE DOSE; ORAL
     Route: 048
     Dates: start: 20090214, end: 20090214

REACTIONS (6)
  - ACTIVATED PARTIAL THROMBOPLASTIN TIME PROLONGED [None]
  - COAGULATION FACTOR VIII LEVEL DECREASED [None]
  - CONDITION AGGRAVATED [None]
  - HAEMARTHROSIS [None]
  - JOINT SWELLING [None]
  - MOBILITY DECREASED [None]
